FAERS Safety Report 5637395-7 (Version None)
Quarter: 2008Q1

REPORT INFORMATION
  Report Type: 
  Country: None (occurrence: None)
  Receive Date: 20080225
  Receipt Date: 20080213
  Transmission Date: 20080703
  Serious: Yes (Other)
  Sender: FDA-Public Use
  Company Number: US-PFIZER INC-2007106748

PATIENT
  Sex: Female

DRUGS (1)
  1. LYRICA [Suspect]
     Indication: FIBROMYALGIA

REACTIONS (6)
  - CONTUSION [None]
  - DYSPNOEA [None]
  - OEDEMA [None]
  - OEDEMA PERIPHERAL [None]
  - URINE ABNORMALITY [None]
  - URINE OUTPUT DECREASED [None]
